FAERS Safety Report 6932249-8 (Version None)
Quarter: 2010Q3

REPORT INFORMATION
  Report Type: 
  Country: None (occurrence: None)
  Receive Date: 20100819
  Receipt Date: 20100811
  Transmission Date: 20110219
  Serious: Yes (Hospitalization)
  Sender: FDA-Public Use
  Company Number: US-ROCHE-716929

PATIENT
  Sex: Female

DRUGS (10)
  1. BONIVA [Suspect]
     Indication: OSTEOPOROSIS
     Route: 065
     Dates: start: 20050101, end: 20070101
  2. ALLOPURINOL [Concomitant]
  3. LIPITOR [Concomitant]
  4. METFORMIN HCL [Concomitant]
  5. TUMS E-X [Concomitant]
  6. ACETAMINOPHEN [Concomitant]
     Dosage: AS NEEDED
  7. LOVENOX [Concomitant]
  8. PERCOCET [Concomitant]
     Dosage: AS NEEDED
  9. ALTACE [Concomitant]
  10. ZOCOR [Concomitant]

REACTIONS (3)
  - FALL [None]
  - FEMUR FRACTURE [None]
  - PAIN IN EXTREMITY [None]
